FAERS Safety Report 6764788-7 (Version None)
Quarter: 2010Q2

REPORT INFORMATION
  Report Type: 
  Country: None (occurrence: None)
  Receive Date: 20100610
  Receipt Date: 20091001
  Transmission Date: 20101027
  Serious: Yes (Death, Hospitalization)
  Sender: FDA-Public Use
  Company Number: US-JNJFOC-20091001552

PATIENT
  Age: 2 Year
  Sex: Female
  Weight: 11.34 kg

DRUGS (2)
  1. CONCENTRATED TYLENOL INFANT DROPS [Suspect]
     Route: 048
     Dates: start: 20090917, end: 20090919
  2. CONCENTRATED TYLENOL INFANT DROPS [Suspect]
     Indication: MALAISE
     Dosage: 160 MG 2-3 TIMES A DAY FOR 3 DAYS
     Route: 048
     Dates: start: 20090917, end: 20090919

REACTIONS (2)
  - PNEUMONIA [None]
  - TRANSMISSION OF AN INFECTIOUS AGENT VIA A MEDICINAL PRODUCT [None]
